FAERS Safety Report 5259379-3 (Version None)
Quarter: 2007Q1

REPORT INFORMATION
  Report Type: 
  Country: None (occurrence: None)
  Receive Date: 20070305
  Receipt Date: 20070220
  Transmission Date: 20070707
  Serious: Yes (Hospitalization)
  Sender: FDA-Public Use
  Company Number: 2007AL000724

PATIENT
  Age: 53 Year
  Sex: Male

DRUGS (10)
  1. CYCLOBENZAPRINE HCL [Suspect]
     Dosage: 10 MG; TID
  2. DULOXETINE [Concomitant]
  3. PREGABALIN [Concomitant]
  4. BUPROPION HCL [Concomitant]
  5. OXYCODONE HCL [Concomitant]
  6. HYDROMORPHONE HCL [Concomitant]
  7. OPIATES [Concomitant]
  8. VANCOMYCIN [Concomitant]
  9. LORAZEPAM [Concomitant]
  10. PROPOFOL [Concomitant]

REACTIONS (5)
  - DRUG INTERACTION [None]
  - HYPERNATRAEMIA [None]
  - HYPONATRAEMIA [None]
  - LACTIC ACIDOSIS [None]
  - SEROTONIN SYNDROME [None]
